FAERS Safety Report 13374344 (Version 1)
Quarter: 2017Q1

REPORT INFORMATION
  Report Type: Spontaneous
  Country: US (occurrence: US)
  Receive Date: 20170327
  Receipt Date: 20170327
  Transmission Date: 20170429
  Serious: No
  Sender: FDA-Public Use
  Company Number: US-PFIZER INC-2017129010

PATIENT
  Age: 55 Year
  Sex: Male

DRUGS (1)
  1. SUTENT [Suspect]
     Active Substance: SUNITINIB MALATE
     Indication: BONE CANCER
     Dosage: 37.5 MG, 1X/DAY (OD FOR 21 DAYS)
     Route: 048
     Dates: start: 20170126

REACTIONS (3)
  - Product use issue [Unknown]
  - Abdominal discomfort [Unknown]
  - Diarrhoea [Unknown]
